FAERS Safety Report 21354768 (Version 3)
Quarter: 2022Q4

REPORT INFORMATION
  Report Type: Spontaneous
  Country: BR (occurrence: BR)
  Receive Date: 20220920
  Receipt Date: 20221025
  Transmission Date: 20230113
  Serious: Yes (Death, Hospitalization)
  Sender: FDA-Public Use
  Company Number: BR-ULTRAGENYX PHARMACEUTICAL INC.-BR-UGX-22-00109

PATIENT
  Age: 12 Year
  Sex: Female
  Weight: 22.6 kg

DRUGS (3)
  1. MEPSEVII [Suspect]
     Active Substance: VESTRONIDASE ALFA-VJBK
     Indication: Mucopolysaccharidosis VII
     Dosage: 10 VIALS (10MG/5ML STRENGTH), QOW
     Route: 042
  2. MEPSEVII [Suspect]
     Active Substance: VESTRONIDASE ALFA-VJBK
     Dosage: 8 VIALS, EVERY 15 DAYS
     Dates: start: 202201
  3. MEPSEVII [Suspect]
     Active Substance: VESTRONIDASE ALFA-VJBK
     Dosage: UNK
     Dates: start: 20220906

REACTIONS (4)
  - Cardio-respiratory arrest [Fatal]
  - Pulmonary embolism [Fatal]
  - Abscess oral [Unknown]
  - Myiasis [Unknown]

NARRATIVE: CASE EVENT DATE: 20220911
